FAERS Safety Report 8271711-5 (Version None)
Quarter: 2012Q2

REPORT INFORMATION
  Report Type: 
  Country: None (occurrence: None)
  Receive Date: 20120410
  Receipt Date: 20120330
  Transmission Date: 20120825
  Serious: No
  Sender: FDA-Public Use
  Company Number: US-BAYER-2012-033158

PATIENT
  Age: 72 Year
  Sex: Female
  Weight: 98 kg

DRUGS (10)
  1. ACTONEL [Concomitant]
  2. GABAPENTIN [Concomitant]
  3. GLIPIZIDE [Concomitant]
  4. MECLIZINE [Concomitant]
  5. ALEVE (CAPLET) [Suspect]
     Indication: ARTHRITIS
     Dosage: 2 U, QOD
     Route: 048
     Dates: start: 20110101
  6. LISINOPRIL [Concomitant]
  7. OXYCODONE HCL [Concomitant]
  8. SIMVASTATIN [Concomitant]
  9. SERTRALINE HYDROCHLORIDE [Concomitant]
  10. JANUMET [Concomitant]

REACTIONS (2)
  - NO ADVERSE EVENT [None]
  - THERAPEUTIC RESPONSE DECREASED [None]
